FAERS Safety Report 5289884-5 (Version None)
Quarter: 2007Q2

REPORT INFORMATION
  Report Type: 
  Country: None (occurrence: None)
  Receive Date: 20070406
  Receipt Date: 20070326
  Transmission Date: 20071010
  Serious: Yes (Other)
  Sender: FDA-Public Use
  Company Number: US-PFIZER INC-2006137349

PATIENT
  Sex: Female
  Weight: 62.6 kg

DRUGS (1)
  1. GEODON [Suspect]
     Indication: SLEEP DISORDER
     Route: 048
     Dates: start: 20061020, end: 20061020

REACTIONS (6)
  - DIZZINESS [None]
  - FEELING ABNORMAL [None]
  - LOSS OF CONSCIOUSNESS [None]
  - OVERDOSE [None]
  - THINKING ABNORMAL [None]
  - UNRESPONSIVE TO STIMULI [None]
